FAERS Safety Report 7493711-5 (Version None)
Quarter: 2011Q2

REPORT INFORMATION
  Report Type: 
  Country: None (occurrence: None)
  Receive Date: 20110520
  Receipt Date: 20110512
  Transmission Date: 20111010
  Serious: Yes (Hospitalization)
  Sender: FDA-Public Use
  Company Number: AU-PERRIGO-11AU003961

PATIENT
  Age: 45 Year
  Sex: Female

DRUGS (1)
  1. IBUPROFEN [Suspect]
     Indication: DENTAL CARIES
     Dosage: 9.6 TO 14.4 G, PER DAY (ABOUT 50 TABLETS PER DAY)
     Route: 048

REACTIONS (8)
  - RENAL TUBULAR ACIDOSIS [None]
  - HYPOKALAEMIA [None]
  - DECREASED APPETITE [None]
  - OVERDOSE [None]
  - RENAL FAILURE ACUTE [None]
  - ANAEMIA MACROCYTIC [None]
  - GASTRIC ULCER [None]
  - LETHARGY [None]
